FAERS Safety Report 18287875 (Version 1)
Quarter: 2020Q3

REPORT INFORMATION
  Report Type: Spontaneous
  Country: US (occurrence: US)
  Receive Date: 20200918
  Receipt Date: 20200918
  Transmission Date: 20201103
  Serious: Yes (Other)
  Sender: FDA-Public Use
  Company Number: None

PATIENT
  Age: 43 Year
  Sex: Female
  Weight: 62.1 kg

DRUGS (5)
  1. NATURE?THROID [Suspect]
     Active Substance: THYROID, PORCINE
     Indication: AUTOIMMUNE THYROIDITIS
     Route: 048
     Dates: start: 20200727, end: 20200907
  2. VITAMIN B12 [Concomitant]
     Active Substance: CYANOCOBALAMIN
  3. SYNTHROID [Concomitant]
     Active Substance: LEVOTHYROXINE SODIUM
  4. HRT [Concomitant]
     Active Substance: UNSPECIFIED INGREDIENT
  5. VITAMIN D [Concomitant]
     Active Substance: VITAMIN D NOS

REACTIONS (13)
  - Swelling face [None]
  - Feeling cold [None]
  - Neuropathy peripheral [None]
  - Constipation [None]
  - Dizziness [None]
  - Arthralgia [None]
  - Fatigue [None]
  - Dry skin [None]
  - Weight increased [None]
  - Therapeutic product effect incomplete [None]
  - Hypothyroidism [None]
  - Headache [None]
  - Abdominal pain [None]

NARRATIVE: CASE EVENT DATE: 20200827
